FAERS Safety Report 6156003-2 (Version None)
Quarter: 2009Q2

REPORT INFORMATION
  Report Type: 
  Country: None (occurrence: None)
  Receive Date: 20090413
  Receipt Date: 20090305
  Transmission Date: 20091009
  Serious: Yes (Death)
  Sender: FDA-Public Use
  Company Number: ENDC20090007

PATIENT
  Sex: 0

DRUGS (3)
  1. ENDOCET [Suspect]
  2. OXYCONTIN [Suspect]
  3. HYDROCODONE BITARTRATE [Suspect]

REACTIONS (3)
  - ACCIDENTAL DEATH [None]
  - MULTIPLE DRUG OVERDOSE ACCIDENTAL [None]
  - THERAPEUTIC AGENT TOXICITY [None]
